FAERS Safety Report 8165258-4 (Version None)
Quarter: 2012Q1

REPORT INFORMATION
  Report Type: 
  Country: None (occurrence: None)
  Receive Date: 20120223
  Receipt Date: 20120223
  Transmission Date: 20120608
  Serious: Yes (Other)
  Sender: FDA-Public Use
  Company Number: None

PATIENT
  Sex: Female
  Weight: 147.8726 kg

DRUGS (1)
  1. MARCAINE [Suspect]
     Indication: CAESAREAN SECTION
     Dosage: X 1 SPINAL
     Dates: start: 20120216

REACTIONS (2)
  - DRUG INEFFECTIVE [None]
  - ANAESTHETIC COMPLICATION [None]
